FAERS Safety Report 7788118-7 (Version None)
Quarter: 2011Q3

REPORT INFORMATION
  Report Type: 
  Country: None (occurrence: None)
  Receive Date: 20110929
  Receipt Date: 20110929
  Transmission Date: 20111222
  Serious: Yes (Hospitalization)
  Sender: FDA-Public Use
  Company Number: None

PATIENT
  Age: 93 Year
  Sex: Male
  Weight: 71.4 kg

DRUGS (1)
  1. DABIGATRAN [Suspect]
     Indication: ATRIAL FIBRILLATION
     Dosage: 150 MG BID PO
     Route: 048
     Dates: start: 20110619, end: 20110823

REACTIONS (6)
  - BLOOD UREA INCREASED [None]
  - BLOOD CREATININE INCREASED [None]
  - ANAEMIA [None]
  - INTERNATIONAL NORMALISED RATIO ABNORMAL [None]
  - DYSPNOEA [None]
  - HAEMORRHAGE [None]
